FAERS Safety Report 4622373-7 (Version None)
Quarter: 2005Q1

REPORT INFORMATION
  Report Type: 
  Country: None (occurrence: None)
  Receive Date: 20050328
  Receipt Date: 20050315
  Transmission Date: 20050727
  Serious: Yes (Hospitalization)
  Sender: FDA-Public Use
  Company Number: 2005045681

PATIENT
  Age: 40 Year
  Sex: Male

DRUGS (1)
  1. HEPARIN SODIUM [Suspect]
     Indication: THROMBOSIS PROPHYLAXIS
     Dosage: 5000 I.U., 1 IN 8 HR, INTRAVENOUS
     Route: 042
     Dates: start: 20050120, end: 20050121

REACTIONS (4)
  - HAEMATOMA [None]
  - ISCHAEMIA [None]
  - PERITONEAL HAEMORRHAGE [None]
  - SUTURE RELATED COMPLICATION [None]
